FAERS Safety Report 9505608 (Version 1)
Quarter: 2013Q1

REPORT INFORMATION
  Report Type: Spontaneous
  Country: US (occurrence: None)
  Receive Date: 20130221
  Receipt Date: 20130221
  Transmission Date: 20140127
  Serious: No
  Sender: FDA-Public Use
  Company Number: 1204USA00929

PATIENT
  Age: 36 Month
  Sex: Female

DRUGS (1)
  1. PRINIVIL [Suspect]
     Route: 048
     Dates: start: 20120404, end: 20120404

REACTIONS (3)
  - Overdose [None]
  - Accidental exposure to product by child [None]
  - No adverse event [None]
